FAERS Safety Report 6278767-X (Version None)
Quarter: 2009Q3

REPORT INFORMATION
  Report Type: 
  Country: None (occurrence: None)
  Receive Date: 20090721
  Receipt Date: 20090708
  Transmission Date: 20100115
  Serious: Yes (Hospitalization)
  Sender: FDA-Public Use
  Company Number: 310028K09USA

PATIENT
  Sex: Female
  Weight: 89 kg

DRUGS (7)
  1. GONAL-F [Suspect]
     Indication: INFERTILITY
     Dosage: SEE IMAGE
     Dates: start: 20080101, end: 20080101
  2. GONAL-F [Suspect]
     Indication: INFERTILITY
     Dosage: SEE IMAGE
     Dates: start: 20080101, end: 20080101
  3. GONAL-F [Suspect]
     Indication: INFERTILITY
     Dosage: SEE IMAGE
     Dates: start: 20080118, end: 20080101
  4. GONAL-F [Suspect]
     Indication: INFERTILITY
     Dosage: SEE IMAGE
     Dates: start: 20080601
  5. GONAL-F [Suspect]
     Indication: INFERTILITY
     Dosage: SEE IMAGE
     Dates: start: 20081001
  6. GONAL-F [Suspect]
     Indication: INFERTILITY
     Dosage: SEE IMAGE
     Dates: start: 20090101
  7. GLUCOPHAGE [Concomitant]

REACTIONS (3)
  - ABORTION SPONTANEOUS [None]
  - DRUG EXPOSURE DURING PREGNANCY [None]
  - ECTOPIC PREGNANCY [None]
